FAERS Safety Report 10369431 (Version 1)
Quarter: 2014Q1

REPORT INFORMATION
  Report Type: Spontaneous
  Country: US (occurrence: None)
  Receive Date: 20140306
  Receipt Date: 20140306
  Transmission Date: 20141002
  Serious: Yes (Hospitalization)
  Sender: FDA-Public Use
  Company Number: 163-21880-13091172

PATIENT
  Age: 70 Year
  Sex: Female
  Weight: 45.36 kg

DRUGS (9)
  1. REVLIMID (LENALIDOMIDE) (CAPSULES) [Suspect]
     Indication: PLASMA CELL MYELOMA
     Dosage: 25 MG, 21 IN 21 D, PO
     Route: 048
     Dates: start: 20130710, end: 20130904
  2. REGLAN (METOCLOPRAMIDE) (UNKNOWN) [Concomitant]
  3. LEVOFLOXACIN (LEVOFLOXACIN) (UNKNOWN) [Concomitant]
  4. ZOMETA (ZOLEDRONIC ACID) (UNKNOWN) [Concomitant]
  5. ZANTAC (RANITIDINE HYDROCHLORIDE) (UNKNOWN) [Concomitant]
  6. PRILOSEC (OMEPRAZOLE) (UNKNOWN) [Concomitant]
  7. PHENERGRAN (PROMETHAZINE HYDROCHLORIDE) (UNKNOWN) [Concomitant]
  8. COMPAZINE (PROCHLORPERAZINE EDISYLATE) (UNKNOWN) [Concomitant]
  9. ZOFRAN (ONDANSETRON HYDROCHLORIDE) (UNKNOWN) [Concomitant]

REACTIONS (4)
  - Nausea [None]
  - Vomiting [None]
  - Asthenia [None]
  - Weight decreased [None]
